FAERS Safety Report 5754935-8 (Version None)
Quarter: 2008Q2

REPORT INFORMATION
  Report Type: 
  Country: None (occurrence: None)
  Receive Date: 20080602
  Receipt Date: 20080528
  Transmission Date: 20081010
  Serious: Yes (Other)
  Sender: FDA-Public Use
  Company Number: GB-SP-2008-01794

PATIENT
  Sex: Male

DRUGS (2)
  1. IMMUCYST [Suspect]
     Dosage: NOT REPORTED
     Route: 065
     Dates: end: 20080501
  2. IMMUCYST [Suspect]
     Dosage: NOT REPORTED
     Route: 065
     Dates: end: 20080501

REACTIONS (4)
  - ERYTHEMA [None]
  - EYE DISORDER [None]
  - EYE SWELLING [None]
  - JOINT SWELLING [None]
